FAERS Safety Report 5981070-6 (Version None)
Quarter: 2008Q4

REPORT INFORMATION
  Report Type: 
  Country: None (occurrence: None)
  Receive Date: 20081205
  Receipt Date: 20081030
  Transmission Date: 20090506
  Serious: No
  Sender: FDA-Public Use
  Company Number: A0754218A

PATIENT
  Age: 57 Year
  Sex: Female

DRUGS (1)
  1. COMMIT NICOTINE POLACRILEX CAPPUCCINO LOZENGE, 4MG [Suspect]
     Dates: start: 20081028, end: 20081028

REACTIONS (1)
  - NAUSEA [None]
